FAERS Safety Report 14423370 (Version 1)
Quarter: 2018Q1

REPORT INFORMATION
  Report Type: Spontaneous
  Country: US (occurrence: US)
  Receive Date: 20180123
  Receipt Date: 20180123
  Transmission Date: 20180509
  Serious: No
  Sender: FDA-Public Use
  Company Number: US-JNJFOC-20171133289

PATIENT
  Age: 63 Year
  Sex: Female
  Weight: 58.06 kg

DRUGS (2)
  1. VALIUM [Concomitant]
     Active Substance: DIAZEPAM
     Route: 065
  2. DURAGESIC [Suspect]
     Active Substance: FENTANYL
     Indication: INTERVERTEBRAL DISC PROTRUSION
     Route: 062
     Dates: start: 2003

REACTIONS (7)
  - Vomiting [Unknown]
  - Drug effect decreased [Unknown]
  - Parosmia [Unknown]
  - Product quality issue [Unknown]
  - Drug dose omission [Unknown]
  - Product availability issue [Unknown]
  - Inappropriate schedule of drug administration [Unknown]

NARRATIVE: CASE EVENT DATE: 20171125
